FAERS Safety Report 8413680-0 (Version None)
Quarter: 2012Q2

REPORT INFORMATION
  Report Type: 
  Country: None (occurrence: None)
  Receive Date: 20120605
  Receipt Date: 20120507
  Transmission Date: 20120825
  Serious: Yes (Other)
  Sender: FDA-Public Use
  Company Number: US-ROCHE-1018596

PATIENT
  Sex: Female
  Weight: 80.994 kg

DRUGS (34)
  1. CETIRIZINE [Concomitant]
  2. TOPIRAMATE [Concomitant]
     Route: 048
  3. PRILOSEC [Concomitant]
     Route: 048
     Dates: start: 20110705
  4. MYLANTA DS [Concomitant]
     Dosage: 1.05 TBSP DAILY
     Dates: start: 20110705
  5. ZYFLO [Concomitant]
     Route: 048
     Dates: start: 20110725
  6. SINGULAIR [Concomitant]
     Route: 048
     Dates: start: 20110706
  7. CYCLOBENZAPRINE [Concomitant]
  8. OMEPRAZOLE [Concomitant]
  9. NAPROXEN [Concomitant]
     Dosage: 01 TABLET TWICE DAILY WITH MEALS
     Route: 048
     Dates: start: 20110523
  10. VOLTAREN [Concomitant]
     Dosage: USE A SDIRECTED
     Route: 062
     Dates: start: 20110829
  11. BACTROBAN [Concomitant]
     Dosage: APLY THIN FLM THREE TIMES A  DAY
     Dates: start: 20110915
  12. IMITREX [Concomitant]
     Dosage: 01 TABLET AT THE TIME OF ONSET OF MIGRAINE HEADACHE, MAY REAPEAT IN 02 HOURS IF REQUIRED
     Route: 048
  13. PLAQUENIL [Concomitant]
     Route: 048
     Dates: start: 20110523
  14. PREDNISONE [Concomitant]
     Route: 048
     Dates: start: 20110928
  15. RESTASIS [Concomitant]
     Dosage: PTLAMIC EMULSION,
     Route: 047
     Dates: start: 20110705
  16. LEXAPRO [Concomitant]
     Route: 048
     Dates: start: 20110928
  17. OMALIZUMAB [Suspect]
     Indication: ASTHMA
     Route: 058
     Dates: start: 20111012
  18. PROAIR HFA [Concomitant]
  19. HYDROXYCHLOROQUINE SULFATE [Concomitant]
  20. CYMBALTA [Concomitant]
     Route: 048
     Dates: start: 20110705
  21. AMITRIPTYLINE HCL [Concomitant]
     Dosage: 01 TABLET AT BEDTIME
     Route: 048
     Dates: start: 20110712
  22. FLEXERIL [Concomitant]
     Dosage: ON TAB AT BEDTIME
     Route: 048
  23. HYDROCODONE [Concomitant]
     Dosage: 5-500 MG, 01 TAB AS NEEDED RFO PAIN
     Route: 048
     Dates: start: 20110408
  24. VITAMIN B COMPLEX CAP [Concomitant]
     Route: 048
     Dates: start: 20110818, end: 20110818
  25. PREMPRO [Concomitant]
     Dosage: 0.3-1.5 MG
     Route: 048
     Dates: start: 20110915, end: 20110915
  26. PROAIR HFA [Concomitant]
     Dosage: INHALE 2 PUFFS BY MOUTH EVERY 04 TO 06 HOURS AS NEEDED
     Dates: start: 20110928
  27. ADVAIR DISKUS 100/50 [Concomitant]
     Dosage: 01 PUFF PER 01 DAY
     Dates: end: 20110801
  28. LYRICA [Concomitant]
  29. FOLIC ACID [Concomitant]
     Route: 048
     Dates: start: 20110705
  30. ALBUTEROL [Concomitant]
     Dosage: 01 OR 02 VIALS DAILY
  31. AMITRIPTYLINE HCL [Concomitant]
     Dosage: 01 TABLET AT BEDTIME
     Route: 048
     Dates: start: 20110705
  32. CORTICOSTEROIDS (UNK INGREDIENTS) [Concomitant]
  33. NEXIUM [Concomitant]
     Dosage: ONE CAPSULE DAILY AS NEEDED
     Route: 048
     Dates: start: 20110408
  34. PREMPRO [Concomitant]
     Dosage: 0.3-1.5 MG
     Route: 048
     Dates: start: 20110727, end: 20110727

REACTIONS (15)
  - FEELING COLD [None]
  - CONDITION AGGRAVATED [None]
  - TYPE I HYPERSENSITIVITY [None]
  - ABDOMINAL PAIN [None]
  - GAIT DISTURBANCE [None]
  - CONSTIPATION [None]
  - ASTHMA [None]
  - JOINT STIFFNESS [None]
  - HEART RATE INCREASED [None]
  - RESPIRATORY RATE INCREASED [None]
  - CHEST DISCOMFORT [None]
  - FATIGUE [None]
  - JOINT SWELLING [None]
  - BLOOD PRESSURE INCREASED [None]
  - DYSPEPSIA [None]
